APPROVED DRUG PRODUCT: HEPARIN SODIUM
Active Ingredient: HEPARIN SODIUM
Strength: 10,000 UNITS/ML
Dosage Form/Route: INJECTABLE;INJECTION
Application: N017029 | Product #020
Applicant: FRESENIUS KABI USA LLC
Approved: Mar 31, 2011 | RLD: Yes | RS: Yes | Type: RX